FAERS Safety Report 8984434 (Version 2)
Quarter: 2013Q1

REPORT INFORMATION
  Report Type: Spontaneous
  Country: IT (occurrence: IT)
  Receive Date: 20121225
  Receipt Date: 20130222
  Transmission Date: 20140127
  Serious: Yes (Other)
  Sender: FDA-Public Use
  Company Number: IT-SANOFI-AVENTIS-2012SA091796

PATIENT
  Age: 86 Year
  Sex: Female

DRUGS (6)
  1. LASIX [Suspect]
     Indication: DIURETIC THERAPY
     Route: 048
     Dates: start: 20120716, end: 20120722
  2. LANSOX [Suspect]
     Indication: ABDOMINAL PAIN UPPER
     Route: 048
     Dates: start: 20120716, end: 20120722
  3. CIPROFLOXACIN [Suspect]
     Indication: CYSTITIS
     Route: 048
     Dates: start: 20120716, end: 20120722
  4. XANAX [Concomitant]
     Indication: ANXIETY
     Dosage: STRENGTH: 0.5 MG
     Route: 048
  5. ESILGAN [Concomitant]
     Indication: INSOMNIA
     Dosage: STRENGTH: 1 MG
     Route: 048
  6. LOSAZID [Concomitant]
     Indication: HYPERTENSION
     Dosage: STRENGTH: 50 MG+12.5 MG
     Route: 048

REACTIONS (9)
  - Syncope [Recovering/Resolving]
  - Agitation [Recovering/Resolving]
  - Malaise [Recovering/Resolving]
  - Asthenia [Recovering/Resolving]
  - Headache [Recovering/Resolving]
  - Nausea [Recovering/Resolving]
  - Vomiting [Recovering/Resolving]
  - Hyponatraemia [Recovering/Resolving]
  - Hypokalaemia [Recovering/Resolving]
